APPROVED DRUG PRODUCT: TRIPROLIDINE AND PSEUDOEPHEDRINE HYDROCHLORIDES W/ CODEINE
Active Ingredient: CODEINE PHOSPHATE; PSEUDOEPHEDRINE HYDROCHLORIDE; TRIPROLIDINE HYDROCHLORIDE
Strength: 10MG/5ML;30MG/5ML;1.25MG/5ML
Dosage Form/Route: SYRUP;ORAL
Application: A089018 | Product #001
Applicant: HR CENCI LABORATORIES INC
Approved: Jul 23, 1986 | RLD: No | RS: No | Type: DISCN